FAERS Safety Report 7567970-4 (Version None)
Quarter: 2011Q2

REPORT INFORMATION
  Report Type: 
  Country: None (occurrence: None)
  Receive Date: 20110623
  Receipt Date: 20110615
  Transmission Date: 20111010
  Serious: Yes (Other)
  Sender: FDA-Public Use
  Company Number: US-GENZYME-RENA-1001199

PATIENT

DRUGS (1)
  1. RENVELA [Suspect]
     Indication: HYPERPHOSPHATAEMIA
     Dosage: 2.4 G, TID
     Dates: start: 20110501

REACTIONS (3)
  - INTESTINAL HAEMORRHAGE [None]
  - HYPERPHOSPHATAEMIA [None]
  - CONSTIPATION [None]
